FAERS Safety Report 9418030 (Version 1)
Quarter: 2013Q3

REPORT INFORMATION
  Report Type: Spontaneous
  Country: FR (occurrence: FR)
  Receive Date: 20130724
  Receipt Date: 20130724
  Transmission Date: 20140515
  Serious: Yes (Death)
  Sender: FDA-Public Use
  Company Number: FR-SANOFI-AVENTIS-2013SA071957

PATIENT
  Age: 65 Year
  Sex: Male

DRUGS (5)
  1. TAXOTERE [Suspect]
     Indication: NEOPLASM MALIGNANT
     Route: 042
     Dates: start: 20130617, end: 20130617
  2. FLUOROURACILE WINTHROP [Suspect]
     Indication: NEOPLASM MALIGNANT
     Dosage: 5960 MG ON 96 HOURS
     Route: 042
     Dates: start: 20130617, end: 20130620
  3. CISPLATIN [Suspect]
     Indication: NEOPLASM MALIGNANT
     Dosage: ON 90 MINUTES
     Route: 042
     Dates: start: 20130617, end: 20130617
  4. RED BLOOD CELLS [Concomitant]
     Dosage: TRANSFUSION, 2 PACKS
     Dates: start: 20130614, end: 20130614
  5. GRANOCYTE [Concomitant]
     Dates: start: 20130622

REACTIONS (2)
  - Diarrhoea [Fatal]
  - Haematotoxicity [Fatal]
